FAERS Safety Report 5933506-4 (Version None)
Quarter: 2008Q4

REPORT INFORMATION
  Report Type: 
  Country: None (occurrence: None)
  Receive Date: 20081029
  Receipt Date: 20081023
  Transmission Date: 20090506
  Serious: Yes (Other)
  Sender: FDA-Public Use
  Company Number: DE-RANBAXY-2008RR-18861

PATIENT
  Sex: Female
  Weight: 61 kg

DRUGS (4)
  1. ACETAMINOPHEN [Suspect]
     Indication: PYREXIA
     Dosage: 500 MG, BID
     Route: 048
     Dates: start: 20080505, end: 20080506
  2. ACETAMINOPHEN [Suspect]
     Dosage: UNK MG, UNK
     Dates: start: 20080505, end: 20080506
  3. AMOXIBETA T [Suspect]
     Indication: TONSILLITIS
     Dosage: 500 MG, TID
     Route: 048
     Dates: start: 20080505, end: 20080512
  4. AMOXIBETA T [Suspect]
     Dosage: 12000 MG, UNK
     Route: 048
     Dates: start: 20080505, end: 20080512

REACTIONS (1)
  - AUTOIMMUNE THROMBOCYTOPENIA [None]
